FAERS Safety Report 17547944 (Version 4)
Quarter: 2020Q2

REPORT INFORMATION
  Report Type: Spontaneous
  Country: US (occurrence: US)
  Receive Date: 20200316
  Receipt Date: 20200617
  Transmission Date: 20200713
  Serious: No
  Sender: FDA-Public Use
  Company Number: US-GLAXOSMITHKLINE-US2020041913

PATIENT
  Sex: Male

DRUGS (1)
  1. TRELEGY ELLIPTA [Suspect]
     Active Substance: FLUTICASONE FUROATE\UMECLIDINIUM BROMIDE\VILANTEROL TRIFENATATE
     Indication: PRODUCT USED FOR UNKNOWN INDICATION
     Dosage: UNK (100/62.5/25 MCG)
     Route: 065
     Dates: start: 201909

REACTIONS (5)
  - Bronchitis [Unknown]
  - Wrong technique in device usage process [Unknown]
  - Product complaint [Unknown]
  - Productive cough [Unknown]
  - Product dose omission [Unknown]
